FAERS Safety Report 4461325-7 (Version None)
Quarter: 2004Q3

REPORT INFORMATION
  Report Type: 
  Country: None (occurrence: None)
  Receive Date: 20040902
  Receipt Date: 20040817
  Transmission Date: 20050211
  Serious: Yes (Hospitalization)
  Sender: FDA-Public Use
  Company Number: 2003-02350

PATIENT
  Age: 72 Year
  Sex: Male

DRUGS (6)
  1. IMMUCYST (BCG - IT (CONNAUGHT)), AVENTIS PASTEUR LTD. [Suspect]
     Indication: BLADDER CANCER
     Dosage: (81.0 MG), B. IN . , BLADDER
     Route: 043
     Dates: start: 20031013
  2. OFLOCET [Concomitant]
  3. PLACEBO OFLOCET [Concomitant]
  4. LANSOPRAZOLE [Concomitant]
  5. DULCIPHAK [Concomitant]
  6. EUPHYTOSE [Concomitant]

REACTIONS (8)
  - C-REACTIVE PROTEIN INCREASED [None]
  - CHOLESTASIS [None]
  - DYSURIA [None]
  - HAEMATURIA [None]
  - INFLUENZA [None]
  - LUNG INFILTRATION [None]
  - PERINEAL PAIN [None]
  - POLLAKIURIA [None]
